FAERS Safety Report 15153173 (Version 1)
Quarter: 2018Q3

REPORT INFORMATION
  Report Type: Spontaneous
  Country: US (occurrence: US)
  Receive Date: 20180619
  Receipt Date: 20180619
  Transmission Date: 20181010
  Serious: No
  Sender: FDA-Public Use
  Company Number: None

PATIENT
  Age: 8 Year
  Sex: Female
  Weight: 27 kg

DRUGS (2)
  1. FLUTICASONE PROPIONATE NASAL SPRAY [Suspect]
     Active Substance: FLUTICASONE PROPIONATE
     Indication: HYPERSENSITIVITY
     Dosage: ?          QUANTITY:1 SPRAY(S);?
     Route: 055
     Dates: start: 20180304, end: 20180619
  2. FOCLIN [Concomitant]

REACTIONS (5)
  - Nasal pruritus [None]
  - Oropharyngeal pain [None]
  - Epistaxis [None]
  - Nasal congestion [None]
  - Recalled product [None]

NARRATIVE: CASE EVENT DATE: 20180304
